FAERS Safety Report 6379112-1 (Version None)
Quarter: 2009Q3

REPORT INFORMATION
  Report Type: 
  Country: None (occurrence: None)
  Receive Date: 20090923
  Receipt Date: 20090910
  Transmission Date: 20100115
  Serious: Yes (Other)
  Sender: FDA-Public Use
  Company Number: 1-19862591

PATIENT
  Age: 21 Year
  Sex: Male
  Weight: 86.1834 kg

DRUGS (4)
  1. CARBAMAZEPINE [Suspect]
     Indication: CONVULSION
     Dosage: 1400MG TWICE DAILY, ORAL
     Route: 048
     Dates: start: 20090802
  2. ISONIAZID [Suspect]
     Dosage: ORAL
     Route: 048
     Dates: start: 20090801, end: 20090909
  3. LAMOTRIGINE [Concomitant]
  4. CELONTIN [Concomitant]

REACTIONS (11)
  - ABASIA [None]
  - ANTICONVULSANT DRUG LEVEL ABOVE THERAPEUTIC [None]
  - CONVULSION [None]
  - DIZZINESS [None]
  - DRUG INTERACTION [None]
  - EATING DISORDER [None]
  - FALL [None]
  - LETHARGY [None]
  - SLEEP DISORDER [None]
  - VIRAL INFECTION [None]
  - VOMITING [None]
